FAERS Safety Report 9315022 (Version 1)
Quarter: 2013Q2

REPORT INFORMATION
  Report Type: Report from Study
  Country: US (occurrence: US)
  Receive Date: 20130529
  Receipt Date: 20130529
  Transmission Date: 20140414
  Serious: Yes (Other)
  Sender: FDA-Public Use
  Company Number: US-JNJFOC-20130516870

PATIENT
  Sex: Male
  Weight: 86.18 kg

DRUGS (1)
  1. SIMPONI [Suspect]
     Indication: PSORIATIC ARTHROPATHY
     Dosage: APPROXIMATELY EVERY 5-6 MONTHS
     Route: 058

REACTIONS (1)
  - Arterial occlusive disease [Recovered/Resolved]
